FAERS Safety Report 10452942 (Version 1)
Quarter: 2014Q3

REPORT INFORMATION
  Report Type: Report from Study
  Country: DE (occurrence: DE)
  Receive Date: 20140915
  Receipt Date: 20140915
  Transmission Date: 20150326
  Serious: Yes (Hospitalization)
  Sender: FDA-Public Use
  Company Number: DE-ABBVIE-14K-062-1280678-00

PATIENT
  Age: 50 Year
  Sex: Male
  Weight: 75 kg

DRUGS (8)
  1. HUMIRA [Suspect]
     Active Substance: ADALIMUMAB
     Indication: PSORIASIS
     Route: 058
     Dates: start: 2013, end: 2013
  2. HUMIRA [Suspect]
     Active Substance: ADALIMUMAB
     Indication: PSORIATIC ARTHROPATHY
     Route: 058
     Dates: start: 201403, end: 201406
  3. STELARA [Suspect]
     Active Substance: USTEKINUMAB
     Indication: PSORIASIS
     Dates: start: 2013, end: 2013
  4. TILIDINE [Concomitant]
     Active Substance: TILIDINE
     Indication: PRODUCT USED FOR UNKNOWN INDICATION
  5. CICLOSPORINE [Suspect]
     Active Substance: CYCLOSPORINE
     Indication: PSORIASIS
  6. IBUPROFEN. [Concomitant]
     Active Substance: IBUPROFEN
     Indication: PRODUCT USED FOR UNKNOWN INDICATION
  7. FUMADERM [Suspect]
     Active Substance: DIMETHYL FUMARATE\ETHYL FUMARATE
     Indication: PSORIASIS
  8. METHOTREXATE [Suspect]
     Active Substance: METHOTREXATE
     Indication: PSORIASIS

REACTIONS (20)
  - Drug ineffective [Unknown]
  - Influenza [Recovered/Resolved]
  - Pain [Unknown]
  - Psoriasis [Recovering/Resolving]
  - Erythrodermic psoriasis [Unknown]
  - Panic attack [Unknown]
  - Hyperkeratosis [Unknown]
  - Drug resistance [Unknown]
  - Anxiety [Unknown]
  - Drug intolerance [Unknown]
  - Stress [Unknown]
  - Liver function test abnormal [Unknown]
  - Aggression [Unknown]
  - Hyperhidrosis [Unknown]
  - Agitation [Unknown]
  - Panic attack [Unknown]
  - Psoriasis [Not Recovered/Not Resolved]
  - Poor quality sleep [Unknown]
  - Nail dystrophy [Unknown]
  - Drug intolerance [Unknown]

NARRATIVE: CASE EVENT DATE: 2013
